FAERS Safety Report 4542250-X (Version None)
Quarter: 2004Q4

REPORT INFORMATION
  Report Type: 
  Country: None (occurrence: None)
  Receive Date: 20041227
  Receipt Date: 20041209
  Transmission Date: 20050328
  Serious: Yes (Other)
  Sender: FDA-Public Use
  Company Number: 2004116196

PATIENT
  Sex: Male

DRUGS (12)
  1. ZOLOFT [Suspect]
     Indication: ILL-DEFINED DISORDER
  2. ANUSOL (SEE IMAGE) [Suspect]
     Indication: PROCTALGIA
     Dosage: TOPICAL
     Route: 061
  3. ALLOPURINOL [Concomitant]
  4. B-50 (VITAMIN B NOS) [Concomitant]
  5. ISOSORBIDE MONONITRATE [Concomitant]
  6. TAMSULOSIN HYDROCHLORIDE (TAMSULOSIN HYDROCHLORIDE) [Concomitant]
  7. DOCUSATE SODIUM (DOCUSATE SODIUM) [Concomitant]
  8. NEURONTIN [Concomitant]
  9. BICALUTAMIDE(BICALUTAMIDE) [Concomitant]
  10. LEUPRORELIN ACETATE(LEUPRORELIN ACETATE) [Concomitant]
  11. ALL OTHER THERAPEUTIC PRODUCTS (ALL OTHER THERAPEUTIC PRODUCTS) [Concomitant]
  12. LSTERASKIN (CHLORXYLENOL, HEXACHLOROPHENE) [Concomitant]

REACTIONS (4)
  - BALANCE DISORDER [None]
  - DIZZINESS [None]
  - DRUG EFFECT DECREASED [None]
  - PROSTATE CANCER [None]
